FAERS Safety Report 13403720 (Version 2)
Quarter: 2017Q2

REPORT INFORMATION
  Report Type: Spontaneous
  Country: BE (occurrence: BE)
  Receive Date: 20170404
  Receipt Date: 20170410
  Transmission Date: 20170830
  Serious: Yes (Life-Threatening, Other)
  Sender: FDA-Public Use
  Company Number: BE-ROCHE-1915938

PATIENT
  Age: 76 Year
  Sex: Female

DRUGS (1)
  1. CEFTRIAXONE. [Suspect]
     Active Substance: CEFTRIAXONE
     Indication: LYME DISEASE
     Route: 065

REACTIONS (3)
  - Acute kidney injury [Unknown]
  - Autoimmune haemolytic anaemia [Unknown]
  - Pigment nephropathy [Unknown]
